FAERS Safety Report 5152432-4 (Version None)
Quarter: 2006Q4

REPORT INFORMATION
  Report Type: 
  Country: None (occurrence: None)
  Receive Date: 20061116
  Receipt Date: 20060302
  Transmission Date: 20070319
  Serious: Yes (Hospitalization, Other)
  Sender: FDA-Public Use
  Company Number: US-ELI_LILLY_AND_COMPANY-US200605001302

PATIENT
  Age: 52 Year
  Sex: Male
  Weight: 79.365 kg

DRUGS (1)
  1. ZYPREXA [Suspect]
     Dates: start: 19960101

REACTIONS (3)
  - CARDIAC OPERATION [None]
  - DIABETES MELLITUS [None]
  - LIMB OPERATION [None]
